FAERS Safety Report 4832026-8 (Version None)
Quarter: 2005Q4

REPORT INFORMATION
  Report Type: 
  Country: None (occurrence: None)
  Receive Date: 20051116
  Receipt Date: 20051103
  Transmission Date: 20060501
  Serious: Yes (Other)
  Sender: FDA-Public Use
  Company Number: 2005RR-01104

PATIENT
  Age: 28 Year
  Sex: Female
  Weight: 61 kg

DRUGS (3)
  1. ERYTHROMYCIN [Suspect]
     Dosage: TOPICAL
     Route: 061
  2. ZINERYT (ZINC) [Suspect]
     Dosage: TOPICAL
     Route: 061
  3. ISOTRETINOIN [Suspect]
     Dosage: 60 MG
     Dates: start: 20030715, end: 20031115

REACTIONS (3)
  - ABORTION SPONTANEOUS [None]
  - COMPLICATIONS OF MATERNAL EXPOSURE TO THERAPEUTIC DRUGS [None]
  - MATERNAL DRUGS AFFECTING FOETUS [None]
